FAERS Safety Report 12665026 (Version 1)
Quarter: 2016Q3

REPORT INFORMATION
  Report Type: Report from Study
  Country: CA (occurrence: CA)
  Receive Date: 20160818
  Receipt Date: 20160818
  Transmission Date: 20161109
  Serious: Yes (Other)
  Sender: FDA-Public Use
  Company Number: CA-AMGEN-CANSL2016105446

PATIENT
  Sex: Female

DRUGS (1)
  1. XGEVA [Suspect]
     Active Substance: DENOSUMAB
     Indication: PRODUCT USED FOR UNKNOWN INDICATION
     Dosage: 120 MG (1.7 ML), UNK
     Route: 065
     Dates: start: 20140520

REACTIONS (4)
  - General physical health deterioration [Unknown]
  - Metastatic neoplasm [Unknown]
  - Metastases to neck [Unknown]
  - Metastases to stomach [Unknown]
